FAERS Safety Report 19845407 (Version 2)
Quarter: 2021Q3

REPORT INFORMATION
  Report Type: Spontaneous
  Country: CN (occurrence: CN)
  Receive Date: 20210917
  Receipt Date: 20210927
  Transmission Date: 20211014
  Serious: Yes (Hospitalization, Disabling)
  Sender: FDA-Public Use
  Company Number: NVSC2021CN207979

PATIENT
  Age: 55 Year
  Sex: Male
  Weight: 65 kg

DRUGS (20)
  1. ROSUVASTATIN CALCIUM. [Suspect]
     Active Substance: ROSUVASTATIN CALCIUM
     Indication: LIPIDS DECREASED
     Dosage: 20.000 MG, QD
     Route: 048
     Dates: start: 20210821, end: 20210906
  2. ROSUVASTATIN CALCIUM. [Suspect]
     Active Substance: ROSUVASTATIN CALCIUM
     Indication: CEREBRAL INFARCTION
     Dosage: 10 MG, QD
     Route: 048
     Dates: start: 20210903
  3. EDARAVONE [Suspect]
     Active Substance: EDARAVONE
     Indication: CEREBRAL INFARCTION
     Dosage: 15 ML, BID
     Route: 041
     Dates: start: 20210822, end: 20210829
  4. FUROSEMIDE. [Concomitant]
     Active Substance: FUROSEMIDE
     Indication: CSF PRESSURE
  5. MANNITOL. [Concomitant]
     Active Substance: MANNITOL
     Indication: POLYURIA
     Dosage: UNK
     Route: 065
     Dates: start: 20210822
  6. BUTYLPHTHALIDE [Suspect]
     Active Substance: BUTYLPHTHALIDE
     Indication: CEREBRAL INFARCTION
     Dosage: 100 ML, BID
     Route: 041
     Dates: start: 20210822, end: 20210903
  7. SODIUM CHLORIDE. [Suspect]
     Active Substance: SODIUM CHLORIDE
     Indication: CEREBRAL INFARCTION
  8. CIMETIDINE [Suspect]
     Active Substance: CIMETIDINE
     Indication: CEREBRAL INFARCTION
  9. ASPIRIN. [Concomitant]
     Active Substance: ASPIRIN
     Indication: ANTICOAGULANT THERAPY
     Dosage: 0.100 G, QD (ENTERIC COATED TABLETS)
     Route: 048
     Dates: start: 20210822, end: 20210906
  10. EDARAVONE [Suspect]
     Active Substance: EDARAVONE
     Indication: CEREBRAL DISORDER
  11. CIMETIDINE [Suspect]
     Active Substance: CIMETIDINE
     Indication: GASTRIC DISORDER
     Dosage: 0.400 G, QD
     Route: 041
     Dates: start: 20210821, end: 20210903
  12. CLOPIDOGREL HYDROGEN SULFATE [Suspect]
     Active Substance: CLOPIDOGREL BISULFATE
     Indication: CEREBRAL INFARCTION
  13. FUROSEMIDE. [Concomitant]
     Active Substance: FUROSEMIDE
     Indication: POLYURIA
     Dosage: 20.000 MG, QD
     Route: 042
     Dates: start: 20210822, end: 20210827
  14. SODIUM CHLORIDE. [Suspect]
     Active Substance: SODIUM CHLORIDE
     Indication: CEREBRAL DISORDER
     Dosage: 100 ML, BID
     Route: 048
     Dates: start: 20210822, end: 20210903
  15. BUTYLPHTHALIDE [Suspect]
     Active Substance: BUTYLPHTHALIDE
     Indication: CEREBRAL DISORDER
  16. CLOPIDOGREL HYDROGEN SULFATE [Suspect]
     Active Substance: CLOPIDOGREL BISULFATE
     Indication: ANTICOAGULANT THERAPY
     Dosage: 75.000 MG, QD
     Route: 048
     Dates: start: 20210822, end: 20210906
  17. FUROSEMIDE. [Concomitant]
     Active Substance: FUROSEMIDE
     Indication: DEHYDRATION
  18. ASPIRIN. [Concomitant]
     Active Substance: ASPIRIN
     Indication: CEREBRAL INFARCTION
     Dosage: 0.1 G, QMO
     Route: 048
     Dates: start: 20210903
  19. MANNITOL. [Concomitant]
     Active Substance: MANNITOL
     Indication: DEHYDRATION
  20. MANNITOL. [Concomitant]
     Active Substance: MANNITOL
     Indication: CSF PRESSURE

REACTIONS (1)
  - Hepatic function abnormal [Recovering/Resolving]

NARRATIVE: CASE EVENT DATE: 20210901
